FAERS Safety Report 6092152-5 (Version None)
Quarter: 2009Q1

REPORT INFORMATION
  Report Type: 
  Country: None (occurrence: None)
  Receive Date: 20090223
  Receipt Date: 20090203
  Transmission Date: 20090719
  Serious: Yes (Hospitalization)
  Sender: FDA-Public Use
  Company Number: 09-011

PATIENT
  Age: 42 Year
  Sex: Male
  Weight: 91.6266 kg

DRUGS (4)
  1. MECLIZINE HCL [Suspect]
     Indication: ANTIEMETIC SUPPORTIVE CARE
     Dosage: 25 MG ORALLY ONCE DAILY
     Dates: start: 20090130
  2. ADVAIR HFA [Concomitant]
  3. SINGULAIR [Concomitant]
  4. LORAZEPAM [Concomitant]

REACTIONS (10)
  - CONVULSION [None]
  - DEHYDRATION [None]
  - DIZZINESS [None]
  - HEART RATE INCREASED [None]
  - HYPERHIDROSIS [None]
  - HYPOTENSION [None]
  - MALAISE [None]
  - NAUSEA [None]
  - SWOLLEN TONGUE [None]
  - SYNCOPE [None]
